FAERS Safety Report 9660718 (Version 2)
Quarter: 2013Q4

REPORT INFORMATION
  Report Type: Report from Study
  Country: FR (occurrence: FR)
  Receive Date: 20131031
  Receipt Date: 20131113
  Transmission Date: 20140711
  Serious: Yes (Hospitalization)
  Sender: FDA-Public Use
  Company Number: FR-PFIZER INC-2013307973

PATIENT
  Age: 16 Year
  Sex: Female
  Weight: 73 kg

DRUGS (5)
  1. ATGAM [Suspect]
     Indication: BONE MARROW FAILURE
     Dosage: 40 MG/KG, DAILY
     Route: 042
     Dates: start: 20130311, end: 20130314
  2. CICLOSPORIN [Concomitant]
     Indication: BONE MARROW FAILURE
     Dosage: 10 MG/KG, DAILY
  3. SOLU-MEDROL [Concomitant]
     Indication: BONE MARROW FAILURE
     Dosage: 1 MG/KG, DAILY
  4. POLARAMINE [Concomitant]
     Indication: PREMEDICATION
     Dosage: 5 MG, 3X/DAY
  5. PARACETAMOL [Concomitant]
     Indication: PREMEDICATION

REACTIONS (6)
  - Sepsis [Recovered/Resolved]
  - Pyrexia [Recovered/Resolved]
  - Urticaria [Recovered/Resolved]
  - Hypertension [Recovered/Resolved]
  - Headache [Recovered/Resolved]
  - Teething [Recovered/Resolved]
